FAERS Safety Report 7441223-7 (Version None)
Quarter: 2011Q2

REPORT INFORMATION
  Report Type: 
  Country: None (occurrence: None)
  Receive Date: 20110428
  Receipt Date: 20110419
  Transmission Date: 20111010
  Serious: No
  Sender: FDA-Public Use
  Company Number: US-BIOGENIDEC-2011BI010246

PATIENT
  Age: 36 Year
  Sex: Female

DRUGS (1)
  1. TYSABRI [Suspect]
     Indication: MULTIPLE SCLEROSIS
     Route: 042
     Dates: start: 20071017

REACTIONS (5)
  - URINARY INCONTINENCE [None]
  - PAIN [None]
  - NAUSEA [None]
  - RENAL PAIN [None]
  - MIGRAINE [None]
